FAERS Safety Report 20638604 (Version 1)
Quarter: 2022Q1

REPORT INFORMATION
  Report Type: Spontaneous
  Country: US (occurrence: US)
  Receive Date: 20220325
  Receipt Date: 20220325
  Transmission Date: 20220423
  Serious: Yes (Death)
  Sender: FDA-Public Use
  Company Number: US-BRISTOL-MYERS SQUIBB COMPANY-2022-010676

PATIENT
  Age: 72 Year
  Sex: Male

DRUGS (1)
  1. ABRAXANE [Suspect]
     Active Substance: PACLITAXEL
     Indication: Product used for unknown indication
     Dosage: DOSE : 100MG;     FREQ : INFUSE 191MG INTRAVENOUSLY ON DAY 1,8 AND EVERY 15 AND 28
     Route: 042

REACTIONS (1)
  - Adverse event [Fatal]
